FAERS Safety Report 6087508-0 (Version None)
Quarter: 2009Q1

REPORT INFORMATION
  Report Type: 
  Country: None (occurrence: None)
  Receive Date: 20090223
  Receipt Date: 20090210
  Transmission Date: 20090719
  Serious: Yes (Hospitalization, Other)
  Sender: FDA-Public Use
  Company Number: US-ELI_LILLY_AND_COMPANY-US200812002491

PATIENT
  Age: 10 Year
  Sex: Male

DRUGS (4)
  1. ZYPREXA [Suspect]
     Indication: BIPOLAR DISORDER
     Dosage: 10 MG, UNK
     Dates: start: 20080101, end: 20081124
  2. CONCERTA [Concomitant]
     Dosage: UNK, UNK
     Dates: start: 20080101
  3. ZOLOFT [Concomitant]
     Dosage: UNK, UNK
     Dates: start: 20081101, end: 20081124
  4. DEPAKOTE [Concomitant]
     Dosage: UNK, UNK
     Dates: start: 20081201, end: 20081201

REACTIONS (12)
  - ATAXIA [None]
  - BLOOD GLUCOSE DECREASED [None]
  - DIZZINESS [None]
  - DROOLING [None]
  - DYSKINESIA [None]
  - ELECTROENCEPHALOGRAM ABNORMAL [None]
  - GAIT DISTURBANCE [None]
  - HEADACHE [None]
  - HYPOTONIA [None]
  - RESTLESSNESS [None]
  - SOMNOLENCE [None]
  - UNRESPONSIVE TO STIMULI [None]
